FAERS Safety Report 7609666-6 (Version None)
Quarter: 2011Q3

REPORT INFORMATION
  Report Type: 
  Country: None (occurrence: None)
  Receive Date: 20110714
  Receipt Date: 20110706
  Transmission Date: 20111222
  Serious: Yes (Hospitalization)
  Sender: FDA-Public Use
  Company Number: US-ABBOTT-11P-163-0836155-00

PATIENT
  Sex: Female
  Weight: 40.406 kg

DRUGS (10)
  1. ROYAL JELLY [Concomitant]
     Indication: VITAMIN SUPPLEMENTATION
  2. TRAMADOL HCL [Concomitant]
     Indication: PAIN
  3. PROBIOTICS [Concomitant]
     Indication: GASTROINTESTINAL DISORDER
  4. MULTI-VITAMIN [Concomitant]
     Indication: VITAMIN SUPPLEMENTATION
  5. L-CARNITINE [Concomitant]
     Indication: VITAMIN SUPPLEMENTATION
  6. ATIVAN [Concomitant]
     Indication: ANXIETY
  7. PERCOCET [Concomitant]
     Indication: PAIN
  8. COQ10 [Concomitant]
     Indication: VITAMIN SUPPLEMENTATION
  9. FISH OIL [Concomitant]
     Indication: PRODUCT USED FOR UNKNOWN INDICATION
  10. HUMIRA [Suspect]
     Indication: CROHN'S DISEASE
     Dates: start: 20110101

REACTIONS (7)
  - ABDOMINAL PAIN [None]
  - WEIGHT DECREASED [None]
  - INTESTINAL OBSTRUCTION [None]
  - DRUG INEFFECTIVE [None]
  - INSOMNIA [None]
  - URINARY TRACT INFECTION [None]
  - FATIGUE [None]
